FAERS Safety Report 16408608 (Version 1)
Quarter: 2019Q2

REPORT INFORMATION
  Report Type: Spontaneous
  Country: CA (occurrence: CA)
  Receive Date: 20190610
  Receipt Date: 20190610
  Transmission Date: 20190711
  Serious: Yes (Other)
  Sender: FDA-Public Use
  Company Number: CA-ROCHE-2332159

PATIENT
  Sex: Male

DRUGS (10)
  1. IRINOTECAN [Concomitant]
     Active Substance: IRINOTECAN
     Indication: COLORECTAL CANCER STAGE IV
  2. AVASTIN [Suspect]
     Active Substance: BEVACIZUMAB
     Indication: COLORECTAL CANCER STAGE IV
     Dosage: 6 CYCLES OF FOLFOXIRI+AVASTIN
     Route: 065
     Dates: start: 201807, end: 201901
  3. AVASTIN [Suspect]
     Active Substance: BEVACIZUMAB
     Dosage: AVASTIN + XELODA  2 CYCLES
     Route: 065
     Dates: start: 2019, end: 2019
  4. XELODA [Suspect]
     Active Substance: CAPECITABINE
     Indication: COLORECTAL CANCER STAGE IV
     Dosage: XELODA  1
     Route: 048
     Dates: start: 2019, end: 2019
  5. FOLINIC ACID [Concomitant]
     Active Substance: LEUCOVORIN
     Indication: COLORECTAL CANCER STAGE IV
     Dosage: 6 CYCLES OF FOLFOXIRI+AVASTIN ;ONGOING: NO
     Route: 065
  6. FLUOROURACIL. [Concomitant]
     Active Substance: FLUOROURACIL
     Indication: COLORECTAL CANCER STAGE IV
  7. OXALIPLATIN. [Concomitant]
     Active Substance: OXALIPLATIN
     Indication: COLORECTAL CANCER STAGE IV
  8. XELODA [Suspect]
     Active Substance: CAPECITABINE
     Dosage: AVASTIN + XELODA + OXALIPLATINM  1 CYCLE
     Route: 048
     Dates: start: 2019, end: 2019
  9. AVASTIN [Suspect]
     Active Substance: BEVACIZUMAB
     Dosage: AVASTIN + XELODA + OXALIPLATINM  1 CYCLE
     Route: 065
     Dates: start: 2019, end: 2019
  10. XELODA [Suspect]
     Active Substance: CAPECITABINE
     Dosage: AVASTIN + XELODA  2 CYCLES
     Route: 048
     Dates: start: 2019, end: 2019

REACTIONS (3)
  - Liver disorder [Unknown]
  - Cardiac disorder [Unknown]
  - Colon neoplasm [Unknown]

NARRATIVE: CASE EVENT DATE: 20190116
